FAERS Safety Report 13135031 (Version 1)
Quarter: 2017Q1

REPORT INFORMATION
  Report Type: Spontaneous
  Country: US (occurrence: US)
  Receive Date: 20170120
  Receipt Date: 20170120
  Transmission Date: 20170428
  Serious: No
  Sender: FDA-Public Use
  Company Number: US-ASTRAZENECA-2017SE03222

PATIENT
  Sex: Female
  Weight: 68 kg

DRUGS (3)
  1. NEXIUM [Suspect]
     Active Substance: ESOMEPRAZOLE MAGNESIUM
     Indication: GASTROOESOPHAGEAL REFLUX DISEASE
     Route: 048
  2. CRESTOR [Suspect]
     Active Substance: ROSUVASTATIN CALCIUM
     Indication: BLOOD CHOLESTEROL ABNORMAL
     Route: 048
  3. NEXIUM [Suspect]
     Active Substance: ESOMEPRAZOLE MAGNESIUM
     Indication: GASTROOESOPHAGEAL REFLUX DISEASE
     Route: 048

REACTIONS (8)
  - Muscle spasms [Unknown]
  - Systemic lupus erythematosus [Unknown]
  - Dyskinesia [Unknown]
  - Drug dose omission [Unknown]
  - Fibromyalgia [Unknown]
  - Migraine [Unknown]
  - Dysphonia [Not Recovered/Not Resolved]
  - Drug hypersensitivity [Unknown]
